FAERS Safety Report 7277221-6 (Version None)
Quarter: 2011Q1

REPORT INFORMATION
  Report Type: 
  Country: None (occurrence: None)
  Receive Date: 20110113
  Receipt Date: 20110113
  Transmission Date: 20110831
  Serious: Yes (Hospitalization)
  Sender: FDA-Public Use
  Company Number: None

PATIENT
  Age: 50 Year
  Sex: Female
  Weight: 81.6475 kg

DRUGS (1)
  1. TRIAD ALCOHOL PREP PAD TRIAD [Suspect]
     Indication: MULTIPLE SCLEROSIS
     Dosage: DAILY USAGE TOP LAB TESTS 12/12 XRAYS 12/12/10
     Route: 061

REACTIONS (1)
  - GASTROENTERITIS BACTERIAL [None]
